FAERS Safety Report 6544853-X (Version None)
Quarter: 2010Q1

REPORT INFORMATION
  Report Type: 
  Country: None (occurrence: None)
  Receive Date: 20100121
  Receipt Date: 20100111
  Transmission Date: 20100710
  Serious: Yes (Hospitalization, Other)
  Sender: FDA-Public Use
  Company Number: US-PFIZER INC-2010004852

PATIENT
  Sex: Male
  Weight: 109 kg

DRUGS (9)
  1. CLEOCIN [Suspect]
     Indication: TOOTHACHE
     Dosage: 150 MG, UNK
     Route: 048
     Dates: start: 20090907, end: 20090909
  2. NEURONTIN [Concomitant]
     Indication: BACK DISORDER
     Dosage: UNK
  3. TIZANIDINE [Concomitant]
     Indication: BACK DISORDER
     Dosage: UNK
  4. HYDROCODONE [Concomitant]
     Indication: BACK DISORDER
     Dosage: OCCASIONAL
  5. PAROXETINE [Concomitant]
     Indication: ANXIETY
     Dosage: UNK
  6. PROPRANOLOL [Concomitant]
     Indication: ANXIETY
     Dosage: UNK
  7. BUPROPION [Concomitant]
     Indication: ANXIETY
     Dosage: UNK
  8. ALPRAZOLAM [Concomitant]
     Indication: ANXIETY
     Dosage: UNK
  9. ADDERALL 10 [Concomitant]
     Indication: SLEEP DISORDER
     Dosage: UNK

REACTIONS (3)
  - ABSCESS [None]
  - DIVERTICULITIS [None]
  - LARGE INTESTINE PERFORATION [None]
